FAERS Safety Report 5585279-5 (Version None)
Quarter: 2008Q1

REPORT INFORMATION
  Report Type: 
  Country: None (occurrence: None)
  Receive Date: 20080109
  Receipt Date: 20080107
  Transmission Date: 20080703
  Serious: Yes (Death)
  Sender: FDA-Public Use
  Company Number: DE-WYE-G00849908

PATIENT
  Age: 18 Year
  Sex: Male

DRUGS (2)
  1. SIROLIMUS [Suspect]
     Indication: PROPHYLAXIS AGAINST TRANSPLANT REJECTION
     Dosage: UNKNOWN
     Route: 048
     Dates: start: 20030101
  2. LEVOFLOXACIN [Suspect]
     Dosage: UNKNOWN

REACTIONS (1)
  - ACUTE HEPATIC FAILURE [None]
